FAERS Safety Report 14295049 (Version 1)
Quarter: 2017Q4

REPORT INFORMATION
  Report Type: Spontaneous
  Country: JP (occurrence: JP)
  Receive Date: 20171218
  Receipt Date: 20171218
  Transmission Date: 20180321
  Serious: Yes (Other)
  Sender: FDA-Public Use
  Company Number: JP-ACCORD-061891

PATIENT
  Age: 1 Year
  Sex: Male

DRUGS (2)
  1. GEMCITABINE/GEMCITABINE HYDROCHLORIDE [Suspect]
     Active Substance: GEMCITABINE\GEMCITABINE HYDROCHLORIDE
     Indication: ACINAR CELL CARCINOMA OF PANCREAS
     Dosage: DAY 1 AND 8
  2. DOCETAXEL. [Suspect]
     Active Substance: DOCETAXEL
     Indication: ACINAR CELL CARCINOMA OF PANCREAS
     Dosage: DAY 8

REACTIONS (1)
  - Fluid retention [Unknown]
